FAERS Safety Report 6503711-7 (Version None)
Quarter: 2009Q4

REPORT INFORMATION
  Report Type: 
  Country: None (occurrence: None)
  Receive Date: 20091217
  Receipt Date: 20091208
  Transmission Date: 20100525
  Serious: Yes (Other)
  Sender: FDA-Public Use
  Company Number: PHEH2008US06330

PATIENT
  Sex: Female
  Weight: 45.351 kg

DRUGS (59)
  1. ZOMETA [Suspect]
     Indication: OSTEOPOROSIS
     Dosage: 3 MG/4 MG
     Dates: start: 20040322, end: 20051102
  2. PERIDEX [Concomitant]
  3. CLINDAMYCIN [Concomitant]
  4. TAMOXIFEN CITRATE [Concomitant]
  5. MULTIVITAMIN ^LAPPE^ [Concomitant]
  6. CALCIUM [Concomitant]
  7. FEMARA [Concomitant]
     Dosage: 2.5 , DAILY
  8. SIMVASTATIN [Concomitant]
     Dosage: 20 , DAILY
  9. FOLIC ACID [Concomitant]
     Dosage: 1 MG, DAILY
  10. ZANTAC [Concomitant]
     Dosage: 300 MG
     Dates: start: 20050218
  11. PRILOSEC [Concomitant]
     Dosage: 40 MG
     Dates: start: 20050218
  12. EVOXAC [Concomitant]
     Dosage: 30MG
  13. AVITA [Concomitant]
     Dosage: UNK
  14. ZOCOR [Concomitant]
     Dosage: 10 MG
  15. ZITHROMAX [Concomitant]
     Dosage: 250 MG
  16. HYDROCODONE [Concomitant]
     Dosage: UNK
  17. OXYCODONE HCL AND ACETAMINOPHEN [Concomitant]
     Dosage: UNK
  18. DIAZEPAM [Concomitant]
     Dosage: 5 MG
  19. PROPOXYPHENE NAPSYLATE [Concomitant]
     Dosage: UNK
  20. LIPITOR [Concomitant]
     Dosage: 10 MG
  21. FOSAMAX [Concomitant]
     Dosage: UNK
  22. PROCHLORPERAZINE [Concomitant]
     Dosage: 5 MG
  23. ZYRTEC [Concomitant]
     Dosage: 10 MG
  24. RHINOCORT [Concomitant]
     Dosage: UNK
     Route: 045
  25. ISOXSUPRINE HCL [Concomitant]
     Dosage: 10 MG
  26. CIPROFLOXACIN HYDROCHLORIDE [Concomitant]
     Dosage: 500 MG
  27. TOBRADEX [Concomitant]
     Dosage: UNK
  28. PRAVACHOL [Concomitant]
     Dosage: 20 MG
  29. DIPHENOXYLATE HCL AND ATROPINE SULFATE [Concomitant]
     Dosage: UNK
  30. MACROBID [Concomitant]
     Dosage: 100 MG
  31. METROLOTION [Concomitant]
     Dosage: UNK
     Route: 061
  32. ACETIC ACID [Concomitant]
     Dosage: UNK
  33. ERYTHROMYCIN [Concomitant]
     Dosage: UNK
  34. TANNIC ACID [Concomitant]
     Dosage: UNK
  35. VALTREX [Concomitant]
     Dosage: 1 GM
  36. ALLEGRA [Concomitant]
     Dosage: UNK
  37. LEVAQUIN [Concomitant]
     Dosage: 500 MG
  38. TAMIFLU [Concomitant]
     Dosage: 75 MG
  39. MECLIZINE [Concomitant]
     Dosage: 12.5 MG
  40. LESCOL XL [Concomitant]
     Dosage: 80 MG
  41. CLARITHROMYCIN [Concomitant]
     Dosage: 500 MG
  42. CHLORHEXIDINE GLUCONATE [Concomitant]
     Dosage: UNK
  43. TRIAMCINOLONE [Concomitant]
     Dosage: UNK
  44. CHOLESTYRAMINE RESIN [Concomitant]
     Dosage: UNK
  45. ALPRAZOLAM [Concomitant]
     Dosage: 0.25 MG
  46. COMBGEN [Concomitant]
     Dosage: UNK
  47. NITROFURANTOIN [Concomitant]
     Dosage: UNK
  48. DIPHENHYDRAMINE HCL [Concomitant]
     Dosage: 50 MG
  49. TRETINOIN [Concomitant]
     Dosage: UNK
  50. SKELAXIN [Concomitant]
     Dosage: 800 MG
  51. ASPIRIN [Concomitant]
  52. CENTRUM SILVER [Concomitant]
  53. CITRACAL PLUS [Concomitant]
  54. FLEXERIL [Concomitant]
  55. XANAX [Concomitant]
  56. FISH OIL [Concomitant]
  57. PREVACID [Concomitant]
  58. BACTRIM [Concomitant]
  59. FLAGYL [Concomitant]
     Dosage: 500 MG, QID FOR 6 DAYS

REACTIONS (69)
  - ANHEDONIA [None]
  - ANXIETY [None]
  - AORTIC ARTERIOSCLEROSIS [None]
  - BONE DEBRIDEMENT [None]
  - BONE DENSITY DECREASED [None]
  - BONE DISORDER [None]
  - CHRONIC OBSTRUCTIVE PULMONARY DISEASE [None]
  - CHRONIC SINUSITIS [None]
  - COUGH [None]
  - DECREASED APPETITE [None]
  - DENTAL IMPLANTATION [None]
  - DIARRHOEA [None]
  - DISCOMFORT [None]
  - DRY MOUTH [None]
  - DYSPHONIA [None]
  - DYSPNOEA [None]
  - EMOTIONAL DISTRESS [None]
  - EUSTACHIAN TUBE DYSFUNCTION [None]
  - FALL [None]
  - FEELING JITTERY [None]
  - FIBROSIS [None]
  - FISTULA [None]
  - FRACTURED SACRUM [None]
  - GINGIVAL BLEEDING [None]
  - GINGIVAL DISORDER [None]
  - GINGIVAL HYPERPLASIA [None]
  - GINGIVAL OEDEMA [None]
  - GINGIVAL RECESSION [None]
  - GINGIVITIS [None]
  - GOITRE [None]
  - HEART RATE INCREASED [None]
  - HEART RATE IRREGULAR [None]
  - HYPERTENSION [None]
  - HYPOPHAGIA [None]
  - INFLUENZA [None]
  - INJURY [None]
  - ISCHAEMIA [None]
  - JAW DISORDER [None]
  - LIFE EXPECTANCY SHORTENED [None]
  - LIPIDS INCREASED [None]
  - MALAISE [None]
  - MEDICAL DEVICE REMOVAL [None]
  - MITRAL VALVE INCOMPETENCE [None]
  - MUCOSAL DRYNESS [None]
  - MUSCULOSKELETAL PAIN [None]
  - MYALGIA [None]
  - NODULE [None]
  - ORAL SURGERY [None]
  - OROPHARYNGEAL PAIN [None]
  - OROPHARYNGEAL PLAQUE [None]
  - OSTEOARTHRITIS [None]
  - OSTEOLYSIS [None]
  - OSTEOMYELITIS [None]
  - OSTEONECROSIS [None]
  - OSTEOPENIA [None]
  - PAIN [None]
  - PAIN IN JAW [None]
  - PALPITATIONS [None]
  - PHYSICAL DISABILITY [None]
  - REFLUX OESOPHAGITIS [None]
  - RESPIRATORY DISORDER [None]
  - SCAR [None]
  - SICCA SYNDROME [None]
  - SJOGREN'S SYNDROME [None]
  - SPEECH DISORDER [None]
  - SPINAL OSTEOARTHRITIS [None]
  - STOMATITIS [None]
  - TOOTH IMPACTED [None]
  - VIRAL INFECTION [None]
